FAERS Safety Report 7350346-2 (Version None)
Quarter: 2011Q1

REPORT INFORMATION
  Report Type: 
  Country: None (occurrence: None)
  Receive Date: 20110314
  Receipt Date: 20110228
  Transmission Date: 20110831
  Serious: Yes (Other)
  Sender: FDA-Public Use
  Company Number: US-BAYER-2011-018697

PATIENT
  Sex: Female

DRUGS (3)
  1. AVELOX [Suspect]
     Indication: SINUSITIS
     Dosage: DAILY DOSE 400 MG
     Route: 048
     Dates: start: 20110225, end: 20110225
  2. AVELOX [Suspect]
     Indication: OTITIS MEDIA
  3. METFORMIN [Concomitant]

REACTIONS (6)
  - RESPIRATORY DISORDER [None]
  - PRURITUS [None]
  - BURNING SENSATION [None]
  - HYPERSENSITIVITY [None]
  - ERYTHEMA [None]
  - EYE IRRITATION [None]
